FAERS Safety Report 6974278-4 (Version None)
Quarter: 2010Q3

REPORT INFORMATION
  Report Type: 
  Country: None (occurrence: None)
  Receive Date: 20100909
  Receipt Date: 20100730
  Transmission Date: 20110219
  Serious: Yes (Other)
  Sender: FDA-Public Use
  Company Number: PHHY2010ES50102

PATIENT
  Age: 38 Year
  Sex: Female

DRUGS (2)
  1. TEGRETOL [Suspect]
     Indication: EPILEPSY
     Dosage: 400 MG, Q8H
  2. KEPPRA [Suspect]
     Dosage: 1500 MG DAILY

REACTIONS (7)
  - DRUG LEVEL INCREASED [None]
  - DRY MOUTH [None]
  - FALL [None]
  - FOOT FRACTURE [None]
  - MALAISE [None]
  - MUSCULAR WEAKNESS [None]
  - SPEECH DISORDER [None]
